FAERS Safety Report 17029470 (Version 3)
Quarter: 2019Q4

REPORT INFORMATION
  Report Type: Spontaneous
  Country: US (occurrence: US)
  Receive Date: 20191114
  Receipt Date: 20191120
  Transmission Date: 20200122
  Serious: Yes (Other)
  Sender: FDA-Public Use
  Company Number: US-TEVA-2019-US-1136714

PATIENT
  Sex: Female

DRUGS (1)
  1. FENTANYL. [Suspect]
     Active Substance: FENTANYL
     Indication: PRODUCT USED FOR UNKNOWN INDICATION
     Route: 048

REACTIONS (8)
  - Malaise [Unknown]
  - Back pain [Unknown]
  - Lip injury [Unknown]
  - Dementia [Unknown]
  - Walking aid user [Unknown]
  - Loss of personal independence in daily activities [Unknown]
  - Spinal stenosis [Unknown]
  - Pain [Unknown]
